FAERS Safety Report 4636589-7 (Version None)
Quarter: 2005Q2

REPORT INFORMATION
  Report Type: 
  Country: None (occurrence: None)
  Receive Date: 20050325
  Receipt Date: 20041213
  Transmission Date: 20051028
  Serious: No
  Sender: FDA-Public Use
  Company Number: USA040465696

PATIENT
  Age: 84 Year
  Sex: Female
  Weight: 53 kg

DRUGS (6)
  1. FORTEO [Suspect]
     Indication: OSTEOPOROSIS
     Dosage: 20 UG/1 DAY
     Dates: start: 20030601
  2. ACTONEL [Concomitant]
  3. CALCIUM CARBONATE [Concomitant]
  4. GLUCOSAMINE [Concomitant]
  5. VITAMINS NOS [Concomitant]
  6. KLONOPIN [Concomitant]

REACTIONS (8)
  - ASTHENOPIA [None]
  - COUGH [None]
  - EXTRAOCULAR MUSCLE PARESIS [None]
  - EYE IRRITATION [None]
  - INFLUENZA LIKE ILLNESS [None]
  - INJECTION SITE NODULE [None]
  - INJECTION SITE PAIN [None]
  - NASOPHARYNGITIS [None]
